FAERS Safety Report 20915275 (Version 3)
Quarter: 2022Q2

REPORT INFORMATION
  Report Type: Spontaneous
  Country: US (occurrence: US)
  Receive Date: 20220604
  Receipt Date: 20220630
  Transmission Date: 20220721
  Serious: No
  Sender: FDA-Public Use
  Company Number: US-SA-SAC20220526000891

PATIENT
  Age: 52 Year
  Sex: Female

DRUGS (9)
  1. DUPIXENT [Suspect]
     Active Substance: DUPILUMAB
     Indication: Nasal polyps
     Dosage: 300 MG, QOW
     Route: 058
     Dates: start: 20220328
  2. DIVIGEL [Concomitant]
     Active Substance: ESTRADIOL
     Dosage: UNK
  3. OMEPRAZOLE [Concomitant]
     Active Substance: OMEPRAZOLE
     Dosage: 10 MG
  4. DEXILANT [Concomitant]
     Active Substance: DEXLANSOPRAZOLE
     Dosage: 30 MG
  5. VACUNA PFIZER-BIONTECH COVID-19 [Concomitant]
  6. DOXYCYCLINE HYCLATE [Concomitant]
     Active Substance: DOXYCYCLINE HYCLATE
     Dosage: 100 MG
  7. DOXYCYCLINE HYCLATE [Concomitant]
     Active Substance: DOXYCYCLINE HYCLATE
     Dosage: 100 MG
  8. IRON [Concomitant]
     Active Substance: IRON
  9. ASPIRIN [Concomitant]
     Active Substance: ASPIRIN

REACTIONS (7)
  - COVID-19 [Unknown]
  - Upper respiratory tract infection [Unknown]
  - Pyrexia [Unknown]
  - Malaise [Unknown]
  - Fatigue [Unknown]
  - Heart rate increased [Unknown]
  - Product use in unapproved indication [Unknown]

NARRATIVE: CASE EVENT DATE: 20220101
